FAERS Safety Report 12741593 (Version 1)
Quarter: 2016Q3

REPORT INFORMATION
  Report Type: Spontaneous
  Country: JP (occurrence: JP)
  Receive Date: 20160914
  Receipt Date: 20160914
  Transmission Date: 20161109
  Serious: Yes (Other)
  Sender: FDA-Public Use
  Company Number: JP-SA-2016SA166352

PATIENT
  Age: 81 Year
  Sex: Male

DRUGS (9)
  1. MEVALOTIN [Suspect]
     Active Substance: PRAVASTATIN SODIUM
     Route: 048
  2. ALDACTONE-A [Suspect]
     Active Substance: SPIRONOLACTONE
     Route: 048
  3. FEBURIC [Suspect]
     Active Substance: FEBUXOSTAT
     Route: 048
  4. PLAVIX [Suspect]
     Active Substance: CLOPIDOGREL BISULFATE
     Route: 048
  5. EXFORGE [Concomitant]
     Active Substance: AMLODIPINE BESYLATE\VALSARTAN
     Route: 048
  6. TAKEPRON [Concomitant]
     Active Substance: LANSOPRAZOLE
     Route: 048
  7. EPADEL [Concomitant]
     Active Substance: ICOSAPENT
     Route: 048
  8. BUFFERIN [Concomitant]
     Active Substance: ASPIRIN
     Route: 048
  9. PURSENNID [Concomitant]
     Active Substance: SENNOSIDES A AND B
     Route: 048

REACTIONS (1)
  - Electrocardiogram QT prolonged [Unknown]
